FAERS Safety Report 16110243 (Version 1)
Quarter: 2019Q1

REPORT INFORMATION
  Report Type: Spontaneous
  Country: IT (occurrence: IT)
  Receive Date: 20190325
  Receipt Date: 20190325
  Transmission Date: 20190418
  Serious: Yes (Other)
  Sender: FDA-Public Use
  Company Number: IT-SUN PHARMACEUTICAL INDUSTRIES LTD-2019RR-202791

PATIENT
  Sex: Female

DRUGS (3)
  1. OCTREOTIDE. [Suspect]
     Active Substance: OCTREOTIDE
     Indication: ACROMEGALY
     Dosage: UNK, DAILY
     Route: 058
     Dates: start: 1995, end: 1997
  2. PEGVISOMANT [Suspect]
     Active Substance: PEGVISOMANT
     Indication: ACROMEGALY
     Dosage: 10 MILLIGRAM, DAILY
     Route: 065
     Dates: start: 200506, end: 201611
  3. OCTREOTIDE LAR [Suspect]
     Active Substance: OCTREOTIDE
     Indication: ACROMEGALY
     Dosage: 30 MILLIGRAM, 1DOSE/4WEEKS
     Route: 065
     Dates: start: 1997, end: 200511

REACTIONS (1)
  - Drug resistance [Unknown]
